FAERS Safety Report 23985869 (Version 3)
Quarter: 2024Q3

REPORT INFORMATION
  Report Type: Spontaneous
  Country: US (occurrence: US)
  Receive Date: 20240618
  Receipt Date: 20240701
  Transmission Date: 20241017
  Serious: No
  Sender: SANOFI AVENTIS
  Company Number: US-SA-SAC20240611000803

PATIENT
  Age: 63 Year
  Sex: Male

DRUGS (15)
  1. TZIELD [Suspect]
     Active Substance: TEPLIZUMAB-MZWV
     Indication: Diabetes prophylaxis
     Dosage: 157.95 UG, 1X
     Route: 042
     Dates: start: 20240607, end: 20240607
  2. TZIELD [Suspect]
     Active Substance: TEPLIZUMAB-MZWV
     Dosage: 303.75 UG, 1X
     Route: 042
     Dates: start: 20240608, end: 20240608
  3. TZIELD [Suspect]
     Active Substance: TEPLIZUMAB-MZWV
     Dosage: 607.5 UG, 1X
     Route: 042
     Dates: start: 20240609, end: 20240609
  4. TZIELD [Suspect]
     Active Substance: TEPLIZUMAB-MZWV
     Dosage: 1215 UG, QD
     Route: 042
     Dates: start: 20240610, end: 20240610
  5. TZIELD [Suspect]
     Active Substance: TEPLIZUMAB-MZWV
     Dosage: 2502.9 UG, QD
     Route: 042
     Dates: start: 20240611, end: 20240611
  6. TZIELD [Suspect]
     Active Substance: TEPLIZUMAB-MZWV
     Dosage: 2502.9 UG, QD
     Route: 042
     Dates: start: 20240612, end: 20240612
  7. TZIELD [Suspect]
     Active Substance: TEPLIZUMAB-MZWV
     Dosage: 2502.9 UG, QD
     Route: 042
     Dates: start: 20240613, end: 20240613
  8. TZIELD [Suspect]
     Active Substance: TEPLIZUMAB-MZWV
     Dosage: 2502.9 UG, QD
     Route: 042
     Dates: start: 20240614, end: 20240614
  9. TZIELD [Suspect]
     Active Substance: TEPLIZUMAB-MZWV
     Dosage: 2502.9 UG, QD
     Route: 042
     Dates: start: 20240615, end: 20240615
  10. TZIELD [Suspect]
     Active Substance: TEPLIZUMAB-MZWV
     Dosage: 2502.9 UG, QD
     Route: 042
     Dates: start: 20240616, end: 20240616
  11. TZIELD [Suspect]
     Active Substance: TEPLIZUMAB-MZWV
     Dosage: 2502.9 UG, QD
     Route: 042
     Dates: start: 20240617, end: 20240617
  12. TZIELD [Suspect]
     Active Substance: TEPLIZUMAB-MZWV
     Dosage: 2502.9 UG, QD
     Route: 042
     Dates: start: 20240618, end: 20240618
  13. TZIELD [Suspect]
     Active Substance: TEPLIZUMAB-MZWV
     Dosage: 2502.9 UG, QD
     Route: 042
     Dates: start: 20240619, end: 20240619
  14. TZIELD [Suspect]
     Active Substance: TEPLIZUMAB-MZWV
     Dosage: 2502.9 UG, QD
     Route: 042
     Dates: start: 20240620, end: 20240620
  15. IBUPROFEN [Concomitant]
     Active Substance: IBUPROFEN
     Dosage: UNK
     Dates: start: 20240607, end: 20240620

REACTIONS (6)
  - Chills [Recovered/Resolved]
  - Blood glucose abnormal [Recovered/Resolved]
  - Pain [Recovered/Resolved]
  - Pyrexia [Recovered/Resolved]
  - Nausea [Recovered/Resolved]
  - Diarrhoea [Recovered/Resolved]

NARRATIVE: CASE EVENT DATE: 20240607
